FAERS Safety Report 5162592-7 (Version None)
Quarter: 2006Q4

REPORT INFORMATION
  Report Type: 
  Country: None (occurrence: None)
  Receive Date: 20061201
  Receipt Date: 20060511
  Transmission Date: 20070319
  Serious: Yes (Other)
  Sender: FDA-Public Use
  Company Number: 2006UW11121

PATIENT
  Age: 62 Year
  Sex: Female

DRUGS (3)
  1. ARIMIDEX [Suspect]
     Indication: BREAST CANCER FEMALE
     Route: 048
     Dates: start: 20060101, end: 20060401
  2. SYNTHROID [Concomitant]
     Indication: HYPOTHYROIDISM
  3. TORADOL [Concomitant]
     Indication: PAIN

REACTIONS (2)
  - ARTHRALGIA [None]
  - SYSTEMIC LUPUS ERYTHEMATOSUS [None]
